FAERS Safety Report 16471867 (Version 5)
Quarter: 2021Q1

REPORT INFORMATION
  Report Type: Spontaneous
  Country: US (occurrence: US)
  Receive Date: 20190625
  Receipt Date: 20210302
  Transmission Date: 20210419
  Serious: Yes (Death, Other)
  Sender: FDA-Public Use
  Company Number: US-AMGEN-USASP2019098345

PATIENT
  Age: 91 Year
  Sex: Male
  Weight: 63 kg

DRUGS (19)
  1. LUPRON DEPOT [Concomitant]
     Active Substance: LEUPROLIDE ACETATE
     Dosage: 4 MONTH
  2. ALEVE [Concomitant]
     Active Substance: NAPROXEN SODIUM
  3. ASPIRIN [ACETYLSALICYLIC ACID] [Concomitant]
     Active Substance: ASPIRIN
  4. LOTEMAX [Concomitant]
     Active Substance: LOTEPREDNOL ETABONATE
  5. FLUAD QUAD [Concomitant]
  6. XTANDI [Suspect]
     Active Substance: ENZALUTAMIDE
     Indication: PROSTATE CANCER
     Dosage: 160 MILLIGRAM, QD
     Route: 048
     Dates: start: 20180404
  7. DAILY VITE [COLECALCIFEROL;CYANOCOBALAMIN;ERGOCALCIFEROL;NICOTINAMIDE; [Concomitant]
  8. BICALUTAMIDE. [Concomitant]
     Active Substance: BICALUTAMIDE
  9. LOSARTAN POTASSIUM. [Concomitant]
     Active Substance: LOSARTAN POTASSIUM
  10. DOCUSATE SODIUM. [Concomitant]
     Active Substance: DOCUSATE SODIUM
  11. XTANDI [Suspect]
     Active Substance: ENZALUTAMIDE
     Dosage: 160 MILLIGRAM, QD
     Route: 048
  12. PRAVASTATIN SODIUM. [Concomitant]
     Active Substance: PRAVASTATIN SODIUM
  13. SIMBRINZA [Concomitant]
     Active Substance: BRIMONIDINE TARTRATE\BRINZOLAMIDE
  14. XGEVA [Suspect]
     Active Substance: DENOSUMAB
     Indication: PRODUCT USED FOR UNKNOWN INDICATION
     Dosage: UNK
     Route: 065
  15. XTANDI [Suspect]
     Active Substance: ENZALUTAMIDE
     Dosage: 160 MILLIGRAM, QD
     Route: 048
     Dates: start: 201901
  16. CASODEX [Concomitant]
     Active Substance: BICALUTAMIDE
  17. TIMOLOL MALEATE. [Concomitant]
     Active Substance: TIMOLOL MALEATE
  18. CALCIUM [Concomitant]
     Active Substance: CALCIUM
  19. TIMOLOL. [Concomitant]
     Active Substance: TIMOLOL

REACTIONS (5)
  - Skin exfoliation [Unknown]
  - Dizziness [Unknown]
  - Rash pruritic [Unknown]
  - Death [Fatal]
  - Visual impairment [Unknown]

NARRATIVE: CASE EVENT DATE: 20201223
